FAERS Safety Report 9342911 (Version 1)
Quarter: 2013Q2

REPORT INFORMATION
  Report Type: Spontaneous
  Country: IT (occurrence: IT)
  Receive Date: 20130611
  Receipt Date: 20130611
  Transmission Date: 20140414
  Serious: Yes (Hospitalization)
  Sender: FDA-Public Use
  Company Number: IT-BAYER-2013-071249

PATIENT
  Age: 85 Year
  Sex: Female

DRUGS (7)
  1. CARDIOASPIRIN [Suspect]
     Indication: ATRIAL FIBRILLATION
     Dosage: DAILY DOSE 100 MG
     Route: 048
     Dates: start: 20130101, end: 20130502
  2. CLEXANE [Suspect]
     Indication: THROMBOSIS PROPHYLAXIS
     Dosage: DAILY DOSE 4000 IU
     Route: 058
     Dates: start: 20130401, end: 20130502
  3. SERETIDE [Concomitant]
     Dosage: UNK
     Route: 055
  4. SPIRIVA [Concomitant]
  5. LANOXIN [Concomitant]
  6. TRIATEC [Concomitant]
  7. LANSOX [Concomitant]
     Dosage: DAILY DOSE 30 MG
     Route: 048

REACTIONS (5)
  - Muscular weakness [Unknown]
  - Speech disorder [Unknown]
  - Hemiplegia [Unknown]
  - Thalamus haemorrhage [Unknown]
  - Brain oedema [Unknown]
